FAERS Safety Report 17487212 (Version 1)
Quarter: 2020Q1

REPORT INFORMATION
  Report Type: Spontaneous
  Country: US (occurrence: US)
  Receive Date: 20200303
  Receipt Date: 20200303
  Transmission Date: 20200409
  Serious: No
  Sender: FDA-Public Use
  Company Number: US-GLAXOSMITHKLINE-US2020036551

PATIENT
  Age: 61 Year
  Sex: Female

DRUGS (1)
  1. NICORETTE FRUIT CHILL [Suspect]
     Active Substance: NICOTINE
     Indication: SMOKING CESSATION THERAPY
     Dosage: 48 MG
     Route: 065
     Dates: start: 202002

REACTIONS (4)
  - Abdominal discomfort [Recovered/Resolved]
  - Muscle spasms [Recovered/Resolved]
  - Expired product administered [Unknown]
  - Abdominal pain upper [Recovered/Resolved]

NARRATIVE: CASE EVENT DATE: 202002
